FAERS Safety Report 18047046 (Version 1)
Quarter: 2020Q3

REPORT INFORMATION
  Report Type: Other
  Country: US (occurrence: US)
  Receive Date: 20200720
  Receipt Date: 20200720
  Transmission Date: 20201103
  Serious: No
  Sender: FDA-Public Use
  Company Number: US-ROCHE-2569709

PATIENT
  Age: 48 Year
  Sex: Male

DRUGS (2)
  1. ATEZOLIZUMAB. [Suspect]
     Active Substance: ATEZOLIZUMAB
     Indication: LUNG ADENOCARCINOMA STAGE IV
     Route: 041
  2. ERLOTINIB [Concomitant]
     Active Substance: ERLOTINIB
     Indication: LUNG ADENOCARCINOMA STAGE IV
     Route: 048

REACTIONS (1)
  - Eosinophilic fasciitis [Recovering/Resolving]
